FAERS Safety Report 9094013 (Version 1)
Quarter: 2013Q1

REPORT INFORMATION
  Report Type: Report from Study
  Country: FR (occurrence: FR)
  Receive Date: 20130201
  Receipt Date: 20130201
  Transmission Date: 20140127
  Serious: Yes (Other)
  Sender: FDA-Public Use
  Company Number: FR-ROCHE-1185720

PATIENT
  Sex: 0

DRUGS (2)
  1. RITUXIMAB [Suspect]
     Indication: HEPATITIS C
     Route: 065
  2. RITUXIMAB [Suspect]
     Indication: VASCULITIS

REACTIONS (1)
  - Posterior reversible encephalopathy syndrome [Unknown]
